FAERS Safety Report 8951056 (Version 1)
Quarter: 2012Q4

REPORT INFORMATION
  Report Type: 
  Country: FR (occurrence: FR)
  Receive Date: 20121207
  Receipt Date: 20121207
  Transmission Date: 20130627
  Serious: Yes (Hospitalization, Other)
  Sender: FDA-Public Use
  Company Number: FR-PFIZER INC-2012306635

PATIENT
  Age: 80 Year
  Sex: Female
  Weight: 30 kg

DRUGS (3)
  1. CORDARONE [Suspect]
     Indication: ATRIAL FIBRILLATION
     Dosage: UNK
     Route: 048
     Dates: start: 201201, end: 20120807
  2. COUMADINE [Concomitant]
     Dosage: 4 mg, UNK
     Dates: start: 201201
  3. ROCEPHINE [Concomitant]
     Dosage: UNK
     Dates: start: 20120726, end: 20120730

REACTIONS (2)
  - Hepatocellular injury [Recovering/Resolving]
  - Cholelithiasis [Unknown]
